FAERS Safety Report 9311892 (Version 2)
Quarter: 2013Q3

REPORT INFORMATION
  Report Type: Spontaneous
  Country: US (occurrence: None)
  Receive Date: 20130211
  Receipt Date: 20130815
  Transmission Date: 20140515
  Serious: Yes (Other)
  Sender: FDA-Public Use
  Company Number: ADR-2012-02254

PATIENT
  Age: 29 Year
  Sex: Female

DRUGS (2)
  1. LIORESAL INTRATHECAL (BACLOFEN INJECTION) [Suspect]
     Indication: PAIN
  2. DILAUDID (HYDROMORPHONE), BUPIVACAINE [Concomitant]

REACTIONS (3)
  - Pain [None]
  - Obesity [None]
  - Weight increased [None]
